FAERS Safety Report 25590928 (Version 1)
Quarter: 2025Q3

REPORT INFORMATION
  Report Type: Spontaneous
  Country: US (occurrence: None)
  Receive Date: 20250721
  Receipt Date: 20250721
  Transmission Date: 20251021
  Serious: Yes (Hospitalization)
  Sender: FDA-CTU
  Company Number: None

PATIENT
  Age: 69 Year
  Sex: Female

DRUGS (10)
  1. MYCOPHENOLIC ACID [Suspect]
     Active Substance: MYCOPHENOLIC ACID
     Indication: Bone marrow transplant
     Route: 048
     Dates: start: 20250606
  2. ACYCLOVIR [Concomitant]
     Active Substance: ACYCLOVIR
  3. SULFAMETHOXAZOLE\TRIMETHOPRIM [Concomitant]
     Active Substance: SULFAMETHOXAZOLE\TRIMETHOPRIM
  4. MIRTAZAPINE [Concomitant]
     Active Substance: MIRTAZAPINE
  5. POTASSIUM CL 20MEQ ER TABLETS [Concomitant]
  6. MAG-OXIDE 400MG TABLETS [Concomitant]
  7. URSODIOL 300MG CAPSULES [Concomitant]
  8. PREVYMIS 480MG TABLETS [Concomitant]
  9. TACROLIMUS 0.5MG (HALF MG) CAPSULES [Concomitant]
  10. POSACONAZOLE [Concomitant]
     Active Substance: POSACONAZOLE

REACTIONS (2)
  - Pneumonia [None]
  - Therapy cessation [None]

NARRATIVE: CASE EVENT DATE: 20250612
